FAERS Safety Report 6181533-7 (Version None)
Quarter: 2009Q2

REPORT INFORMATION
  Report Type: 
  Country: None (occurrence: None)
  Receive Date: 20090504
  Receipt Date: 20090428
  Transmission Date: 20091009
  Serious: Yes (Death)
  Sender: FDA-Public Use
  Company Number: 2009-01698

PATIENT
  Age: 84 Year
  Sex: Male

DRUGS (13)
  1. VELCADE [Suspect]
     Indication: MULTIPLE MYELOMA
     Dosage: 2.4 MG, INTRAVENOUS
     Route: 042
     Dates: start: 20090224
  2. DEXAMETHASONE TAB [Suspect]
     Indication: MULTIPLE MYELOMA
     Dosage: 20 MG, ORAL
     Route: 048
     Dates: start: 20090223
  3. RENAFEL (SEVELAMER HYDROCHLORIDE) TABLET [Concomitant]
  4. OXYNORM (OXYCODONE HYDROCHLORIDE) CAPSULE [Concomitant]
  5. OXYCONTIN [Concomitant]
  6. AMLODIPINE [Concomitant]
  7. KETOGAN 9KETOBEMIDONE HYDROCHLORIDE, DIMETHYL-3,3-DIPHENYL-1-METHYLALL [Concomitant]
  8. IMPUGAN (FUROSEMIDE) [Concomitant]
  9. LEVOTHYROXINE SODIUM [Concomitant]
  10. ALVEDON FORTE (PARACETAMOL) [Concomitant]
  11. DIMOR (LOPERAMIDE HYDROCHLORIDE) [Concomitant]
  12. ATENOLOL [Concomitant]
  13. COMBIVENT [Concomitant]

REACTIONS (8)
  - ARRHYTHMIA [None]
  - ARTERIOSCLEROSIS [None]
  - CHEST PAIN [None]
  - LUNG DISORDER [None]
  - PULMONARY OEDEMA [None]
  - PULSE ABSENT [None]
  - SHOCK [None]
  - SUDDEN DEATH [None]
